FAERS Safety Report 9921345 (Version 5)
Quarter: 2015Q2

REPORT INFORMATION
  Report Type: Report from Study
  Country: JP (occurrence: JP)
  Receive Date: 20140225
  Receipt Date: 20150512
  Transmission Date: 20150821
  Serious: Yes (Other)
  Sender: FDA-Public Use
  Company Number: PHHY2013JP154752

PATIENT
  Age: 32 Year
  Sex: Male
  Weight: 78 kg

DRUGS (6)
  1. LENDORMIN [Concomitant]
     Active Substance: BROTIZOLAM
     Indication: PROPHYLAXIS
     Dosage: UNK, PRN
     Route: 048
     Dates: start: 20121128
  2. GILENYA [Suspect]
     Active Substance: FINGOLIMOD HYDROCHLORIDE
     Indication: MULTIPLE SCLEROSIS
     Dosage: 0.5 MG, QD
     Route: 048
     Dates: start: 20121127
  3. SELTOUCH [Concomitant]
     Active Substance: FELBINAC
     Indication: PROPHYLAXIS
     Dosage: UNK, PRN
     Route: 065
     Dates: start: 20121220, end: 20130110
  4. BROTIZOLAM [Concomitant]
     Active Substance: BROTIZOLAM
     Indication: PROPHYLAXIS
     Dosage: 0.25 MG, PRN
     Route: 048
     Dates: start: 20140502
  5. ZOLPIDEM [Concomitant]
     Active Substance: ZOLPIDEM\ZOLPIDEM TARTRATE
     Indication: PROPHYLAXIS
     Dosage: 5 MG, PRN
     Route: 048
     Dates: start: 20140411
  6. MYSLEE [Concomitant]
     Active Substance: ZOLPIDEM TARTRATE
     Indication: PROPHYLAXIS
     Dosage: UNK, PRN
     Route: 048
     Dates: start: 20120110, end: 20130220

REACTIONS (1)
  - Acoustic neuroma [Not Recovered/Not Resolved]

NARRATIVE: CASE EVENT DATE: 20131129
